FAERS Safety Report 13847382 (Version 2)
Quarter: 2020Q1

REPORT INFORMATION
  Report Type: Spontaneous
  Country: NO (occurrence: NO)
  Receive Date: 20170808
  Receipt Date: 20200325
  Transmission Date: 20200409
  Serious: Yes (Hospitalization)
  Sender: FDA-Public Use
  Company Number: NO-ASTRAZENECA-2017SE80112

PATIENT
  Age: 28597 Day
  Sex: Male

DRUGS (1)
  1. BRILIQUE [Suspect]
     Active Substance: TICAGRELOR
     Indication: MYOCARDIAL INFARCTION
     Route: 048
     Dates: start: 20170713, end: 20170715

REACTIONS (1)
  - Cheyne-Stokes respiration [Recovered/Resolved]

NARRATIVE: CASE EVENT DATE: 20170714
